FAERS Safety Report 5209171-0 (Version None)
Quarter: 2007Q1

REPORT INFORMATION
  Report Type: 
  Country: None (occurrence: None)
  Receive Date: 20070111
  Receipt Date: 20070103
  Transmission Date: 20070707
  Serious: Yes (Death, Hospitalization)
  Sender: FDA-Public Use
  Company Number: 15288

PATIENT
  Age: 76 Year
  Sex: Male

DRUGS (15)
  1. PENTOSTATIN [Suspect]
     Indication: CHRONIC LYMPHOCYTIC LEUKAEMIA
     Dosage: 8 MG Q3W IV
     Route: 042
     Dates: start: 20061011, end: 20061011
  2. CYTOXAN [Suspect]
     Indication: CHRONIC LYMPHOCYTIC LEUKAEMIA
     Dosage: 1200 MG Q3W IV
     Route: 042
     Dates: start: 20061011, end: 20061011
  3. RITUXAN [Suspect]
     Indication: CHRONIC LYMPHOCYTIC LEUKAEMIA
     Dosage: 750 MG Q3W IV
     Route: 042
     Dates: start: 20061018, end: 20061018
  4. ALLOPURINOL SODIUM [Concomitant]
  5. SEPTRA DS [Concomitant]
  6. VALTREX [Concomitant]
  7. BENADRYL [Concomitant]
  8. DECADRON [Concomitant]
  9. KYTRIL [Concomitant]
  10. LASIX [Concomitant]
  11. POTASSIUM ACETATE [Concomitant]
  12. LISINOPRIL [Concomitant]
  13. TYLENOL [Concomitant]
  14. ARANESP [Concomitant]
  15. COMPAZINE [Concomitant]

REACTIONS (6)
  - BLOOD POTASSIUM INCREASED [None]
  - CHRONIC OBSTRUCTIVE PULMONARY DISEASE [None]
  - HAEMOLYTIC ANAEMIA [None]
  - ISCHAEMIC CARDIOMYOPATHY [None]
  - RENAL FAILURE [None]
  - UPPER GASTROINTESTINAL HAEMORRHAGE [None]
